FAERS Safety Report 5738013-X (Version None)
Quarter: 2008Q2

REPORT INFORMATION
  Report Type: 
  Country: None (occurrence: None)
  Receive Date: 20080508
  Receipt Date: 20070904
  Transmission Date: 20081010
  Serious: Yes (Other)
  Sender: FDA-Public Use
  Company Number: 40488

PATIENT
  Age: 72 Year
  Sex: Male

DRUGS (1)
  1. MITOMYCIN [Suspect]
     Indication: BLADDER CANCER
     Dosage: 40 MG INTRAVESICALLY
     Route: 043
     Dates: start: 20070830

REACTIONS (1)
  - RASH [None]
